FAERS Safety Report 7288492-4 (Version None)
Quarter: 2011Q1

REPORT INFORMATION
  Report Type: 
  Country: None (occurrence: None)
  Receive Date: 20110211
  Receipt Date: 20110203
  Transmission Date: 20110831
  Serious: Yes (Hospitalization)
  Sender: FDA-Public Use
  Company Number: B0699403A

PATIENT
  Sex: Male
  Weight: 76 kg

DRUGS (2)
  1. PAZOPANIB [Suspect]
     Indication: RENAL CANCER METASTATIC
     Dosage: 400MG PER DAY
     Route: 048
     Dates: start: 20101201, end: 20110125
  2. BEVACIZUMAB [Suspect]
     Indication: RENAL CANCER METASTATIC
     Dosage: 7.5MGK EVERY TWO WEEKS
     Route: 042
     Dates: start: 20101215, end: 20110111

REACTIONS (1)
  - GENERAL PHYSICAL HEALTH DETERIORATION [None]
